FAERS Safety Report 10019043 (Version 3)
Quarter: 2014Q2

REPORT INFORMATION
  Report Type: Report from Study
  Country: US (occurrence: US)
  Receive Date: 20140318
  Receipt Date: 20140513
  Transmission Date: 20141212
  Serious: Yes (Hospitalization)
  Sender: FDA-Public Use
  Company Number: US-BRISTOL-MYERS SQUIBB COMPANY-20417754

PATIENT
  Sex: 0

DRUGS (19)
  1. FUROSEMIDE [Concomitant]
  2. GABAPENTIN [Concomitant]
  3. INSULIN DETEMIR [Concomitant]
  4. INSULIN HUMAN [Concomitant]
  5. LISINOPRIL [Concomitant]
  6. MAGNESIUM OXIDE [Concomitant]
  7. METOPROLOL TARTRATE [Concomitant]
  8. POTASSIUM CHLORIDE [Concomitant]
  9. SIMVASTATIN [Concomitant]
  10. VITAMIN B COMPLEX [Concomitant]
  11. METOLAZONE [Concomitant]
  12. INSULIN ASPART [Concomitant]
  13. ARIPIPRAZOLE [Suspect]
     Dosage: LAST DOSE ON 06FEB2014.?LAST DOSE ON 07APR2014.
     Dates: start: 20130826
  14. AMLODIPINE BESYLATE [Concomitant]
  15. ARIPIPRAZOLE [Concomitant]
  16. ASPIRIN [Concomitant]
  17. CHOLECALCIFEROL [Concomitant]
  18. FLUOXETINE [Concomitant]
  19. FOLIC ACID [Concomitant]

REACTIONS (3)
  - Hyperglycaemia [Recovered/Resolved]
  - Pneumonia [Recovered/Resolved]
  - Oedema [Recovered/Resolved with Sequelae]
